FAERS Safety Report 14334998 (Version 2)
Quarter: 2018Q1

REPORT INFORMATION
  Report Type: Spontaneous
  Country: FR (occurrence: FR)
  Receive Date: 20171229
  Receipt Date: 20180112
  Transmission Date: 20180509
  Serious: Yes (Disabling, Other)
  Sender: FDA-Public Use
  Company Number: FR-ABBVIE-17K-056-2122030-00

PATIENT
  Sex: Female
  Weight: 49 kg

DRUGS (3)
  1. METOJECT [Suspect]
     Active Substance: METHOTREXATE SODIUM
     Indication: RHEUMATOID ARTHRITIS
     Route: 065
     Dates: start: 201609, end: 201710
  2. HUMIRA [Suspect]
     Active Substance: ADALIMUMAB
     Indication: RHEUMATOID ARTHRITIS
     Route: 058
     Dates: start: 20170628, end: 201708
  3. SPECIAFOLDINE [Suspect]
     Active Substance: FOLIC ACID
     Indication: RHEUMATOID ARTHRITIS
     Route: 048
     Dates: start: 201609, end: 201710

REACTIONS (7)
  - Pustular psoriasis [Recovering/Resolving]
  - Pulmonary mass [Recovering/Resolving]
  - Pericardial effusion [Recovering/Resolving]
  - Gait disturbance [Recovering/Resolving]
  - Urinary tract infection [Recovered/Resolved]
  - Skin fissures [Recovering/Resolving]
  - Lung disorder [Recovering/Resolving]

NARRATIVE: CASE EVENT DATE: 2017
